FAERS Safety Report 17443942 (Version 2)
Quarter: 2022Q3

REPORT INFORMATION
  Report Type: Spontaneous
  Country: DK (occurrence: DK)
  Receive Date: 20200221
  Receipt Date: 20220706
  Transmission Date: 20221027
  Serious: Yes (Death, Hospitalization)
  Sender: FDA-Public Use
  Company Number: None

PATIENT
  Age: 63 Year
  Sex: Male

DRUGS (18)
  1. KEYTRUDA [Suspect]
     Active Substance: PEMBROLIZUMAB
     Indication: Non-small cell lung cancer
     Dosage: 175 MILLIGRAM
     Route: 042
     Dates: start: 20191111, end: 20191204
  2. KEYTRUDA [Suspect]
     Active Substance: PEMBROLIZUMAB
     Dosage: 175 MILLIGRAM
     Route: 042
     Dates: start: 20191204, end: 20191204
  3. BRICANYL [Concomitant]
     Active Substance: TERBUTALINE SULFATE
     Indication: Bronchospasm
     Dosage: STRENGTH: 0.5 MG/DOSE, DOSE: 1 INHALATION WHEN NEEDED MAXIMUM 12 TIMES DAILY
     Route: 055
     Dates: start: 20191020
  4. METOPROLOL [Concomitant]
     Active Substance: METOPROLOL
     Indication: Arrhythmia
     Dosage: STRENGTH: 100 MILLIGRAM (MG)
     Route: 048
     Dates: start: 20150825
  5. OLODATEROL HYDROCHLORIDE\TIOTROPIUM BROMIDE MONOHYDRATE [Concomitant]
     Active Substance: OLODATEROL HYDROCHLORIDE\TIOTROPIUM BROMIDE MONOHYDRATE
     Indication: Chronic obstructive pulmonary disease
     Dosage: STRENGTH: 2.5+2.5 ?G
     Route: 055
     Dates: start: 20191020
  6. ZOPICLONE [Concomitant]
     Active Substance: ZOPICLONE
     Indication: Insomnia
     Dosage: STRENGTH: 7.5 MG
     Route: 048
     Dates: start: 20191104
  7. IBUPROFEN [Concomitant]
     Active Substance: IBUPROFEN
     Indication: Pain
     Dosage: STRENGTH: 400 MG
     Route: 048
     Dates: start: 20180719
  8. AMLODIPINE [Concomitant]
     Active Substance: AMLODIPINE BESYLATE
     Indication: Hypertension
     Dosage: STRENGTH: 5 MG
     Route: 048
     Dates: start: 20191020
  9. MAGNESIUM HYDROXIDE [Concomitant]
     Active Substance: MAGNESIUM HYDROXIDE
     Indication: Constipation
     Dosage: STRENGTH: 500 MG
     Route: 048
     Dates: start: 20191202
  10. PANTOPRAZOLE [Concomitant]
     Active Substance: PANTOPRAZOLE
     Indication: Prophylaxis against gastrointestinal ulcer
     Dosage: STRENGTH: 40 MG
     Route: 048
     Dates: start: 20170204
  11. FLUCONAZOLE [Concomitant]
     Active Substance: FLUCONAZOLE
     Indication: Oral viral infection
     Dosage: STRENGTH: 50 MG
     Route: 048
     Dates: start: 20191031
  12. PROMETHAZINE [Concomitant]
     Active Substance: PROMETHAZINE HYDROCHLORIDE
     Indication: Insomnia
     Dosage: STYRKE: 25 MG
     Route: 048
     Dates: start: 20191203
  13. ACETAMINOPHEN [Concomitant]
     Active Substance: ACETAMINOPHEN
     Indication: Pain
     Dosage: UNK
     Dates: start: 20200115
  14. SODIUM PICOSULFATE [Concomitant]
     Active Substance: SODIUM PICOSULFATE
     Indication: Constipation
     Dosage: UNK
     Dates: start: 20191220
  15. CANNABIDIOL [Concomitant]
     Active Substance: CANNABIDIOL
     Indication: Palliative care
     Dosage: UNK
     Dates: start: 20191205
  16. SERTRALINE [Concomitant]
     Active Substance: SERTRALINE HYDROCHLORIDE
     Indication: Depression
     Dosage: UNK
     Dates: start: 20191020
  17. ALFUZOSIN [Concomitant]
     Active Substance: ALFUZOSIN
     Indication: Dysuria
     Dosage: UNK
     Dates: start: 20191214
  18. MICROLAX [SODIUM CITRATE;SODIUM LAURYL SULFOACETATE] [Concomitant]
     Indication: Constipation
     Dosage: UNK
     Dates: start: 20191220

REACTIONS (13)
  - Dysphonia [Unknown]
  - Dysphagia [Unknown]
  - Myelitis [Fatal]
  - Muscular weakness [Unknown]
  - Malaise [Unknown]
  - Urinary retention [Unknown]
  - Ileus [Fatal]
  - Oesophageal pain [Unknown]
  - Gait disturbance [Unknown]
  - Sepsis [Fatal]
  - Myalgia [Unknown]
  - Arthralgia [Unknown]
  - Dysuria [Unknown]

NARRATIVE: CASE EVENT DATE: 20191101
